FAERS Safety Report 15474700 (Version 1)
Quarter: 2018Q4

REPORT INFORMATION
  Report Type: Spontaneous
  Country: GB (occurrence: GB)
  Receive Date: 20181008
  Receipt Date: 20181008
  Transmission Date: 20190205
  Serious: Yes (Hospitalization)
  Sender: FDA-Public Use
  Company Number: GB-TEVA-2018-GB-962126

PATIENT
  Age: 50 Year
  Sex: Female

DRUGS (11)
  1. OMEPRAZOLE SODIUM [Concomitant]
     Active Substance: OMEPRAZOLE SODIUM
  2. TRAMADOL HYDROCHLORIDE. [Concomitant]
     Active Substance: TRAMADOL HYDROCHLORIDE
  3. LORAZEPAM. [Concomitant]
     Active Substance: LORAZEPAM
  4. NAPROXEN. [Concomitant]
     Active Substance: NAPROXEN
  5. PREDNISOLONE. [Concomitant]
     Active Substance: PREDNISOLONE
  6. DALTEPARIN [Concomitant]
     Active Substance: DALTEPARIN
  7. PACLITAXEL. [Suspect]
     Active Substance: PACLITAXEL
     Indication: CHEMOTHERAPY
     Route: 042
  8. DOCUSATE [Concomitant]
     Active Substance: DOCUSATE
  9. ANADIN PARACETAMOL [Concomitant]
     Active Substance: ACETAMINOPHEN
  10. FERROUS GLUCONATE [Concomitant]
     Active Substance: FERROUS GLUCONATE
  11. MORPHINE SULFATE. [Concomitant]
     Active Substance: MORPHINE SULFATE

REACTIONS (1)
  - Dermatitis [Recovering/Resolving]
